FAERS Safety Report 17188905 (Version 1)
Quarter: 2019Q4

REPORT INFORMATION
  Report Type: Spontaneous
  Country: JP (occurrence: JP)
  Receive Date: 20191222
  Receipt Date: 20191222
  Transmission Date: 20200122
  Serious: Yes (Other)
  Sender: FDA-Public Use
  Company Number: NVSJ2019JP005774

PATIENT
  Age: 91 Year
  Sex: Female

DRUGS (1)
  1. RIVASTIGMINE. [Suspect]
     Active Substance: RIVASTIGMINE
     Indication: DEMENTIA ALZHEIMER^S TYPE
     Dosage: UNK
     Route: 003

REACTIONS (7)
  - Cholinergic syndrome [Recovering/Resolving]
  - Dizziness [Recovering/Resolving]
  - Blood cholinesterase decreased [Recovering/Resolving]
  - Headache [Recovering/Resolving]
  - Tachycardia [Unknown]
  - Blood pressure increased [Unknown]
  - Incorrect dose administered [Recovering/Resolving]
